FAERS Safety Report 15741316 (Version 3)
Quarter: 2019Q1

REPORT INFORMATION
  Report Type: Spontaneous
  Country: US (occurrence: US)
  Receive Date: 20181219
  Receipt Date: 20190129
  Transmission Date: 20190417
  Serious: Yes (Disabling)
  Sender: FDA-Public Use
  Company Number: US-ASTRAZENECA-2018SF63447

PATIENT
  Sex: Female

DRUGS (7)
  1. ALBUTEROL. [Concomitant]
     Active Substance: ALBUTEROL
     Route: 065
  2. ARFORMOTEROL [Concomitant]
     Active Substance: ARFORMOTEROL
     Route: 065
  3. TUDORZA PRESSAIR [Suspect]
     Active Substance: ACLIDINIUM BROMIDE
     Indication: CHRONIC OBSTRUCTIVE PULMONARY DISEASE
     Dosage: 400 MCG, UNKNOWN
     Route: 055
  4. TUDORZA PRESSAIR [Suspect]
     Active Substance: ACLIDINIUM BROMIDE
     Indication: LUNG NEOPLASM MALIGNANT
     Dosage: 400 MCG, UNKNOWN
     Route: 055
  5. BUDESONIDE. [Concomitant]
     Active Substance: BUDESONIDE
     Route: 055
  6. TUDORZA PRESSAIR [Suspect]
     Active Substance: ACLIDINIUM BROMIDE
     Indication: BRONCHITIS
     Dosage: 400 MCG, UNKNOWN
     Route: 055
  7. TUDORZA PRESSAIR [Suspect]
     Active Substance: ACLIDINIUM BROMIDE
     Indication: EMPHYSEMA
     Dosage: 400 MCG, UNKNOWN
     Route: 055

REACTIONS (16)
  - Visual acuity reduced [Unknown]
  - Throat irritation [Unknown]
  - Oropharyngeal pain [Unknown]
  - Malaise [Unknown]
  - Rheumatoid arthritis [Unknown]
  - Candida infection [Unknown]
  - Haemoptysis [Unknown]
  - Lung disorder [Unknown]
  - Device malfunction [Unknown]
  - Pneumonia [Unknown]
  - Productive cough [Unknown]
  - Dysphonia [Unknown]
  - Diplegia [Unknown]
  - Dry mouth [Unknown]
  - Spinal column stenosis [Unknown]
  - Device issue [Unknown]
